FAERS Safety Report 8920176 (Version 2)
Quarter: 2013Q2

REPORT INFORMATION
  Report Type: Report from Study
  Country: MX (occurrence: MX)
  Receive Date: 20121122
  Receipt Date: 20130520
  Transmission Date: 20140414
  Serious: Yes (Death, Hospitalization, Other)
  Sender: FDA-Public Use
  Company Number: PHHY2012MX105377

PATIENT
  Age: 39 Year
  Sex: Male

DRUGS (2)
  1. GLIVEC [Suspect]
     Indication: CHRONIC MYELOID LEUKAEMIA
     Dosage: 400 MG
     Dates: start: 20110829
  2. GLIVEC [Suspect]
     Dosage: 400 MG
     Dates: start: 20111025

REACTIONS (3)
  - Cardio-respiratory arrest [Fatal]
  - Thrombocytopenia [Unknown]
  - Therapeutic response decreased [Unknown]
